FAERS Safety Report 10024767 (Version 3)
Quarter: 2014Q2

REPORT INFORMATION
  Report Type: Spontaneous
  Country: GB (occurrence: GB)
  Receive Date: 20140320
  Receipt Date: 20140613
  Transmission Date: 20141212
  Serious: Yes (Other)
  Sender: FDA-Public Use
  Company Number: 2014SP001570

PATIENT
  Age: 80 Year
  Sex: Female

DRUGS (8)
  1. ALVESCO INHALATION AEROSOL [Suspect]
     Indication: PRODUCT USED FOR UNKNOWN INDICATION
     Route: 055
     Dates: start: 20140503
  2. VENTOLIN /00139501/ [Concomitant]
  3. OMEPRAZOLE [Concomitant]
  4. BUTOBARBITAL [Concomitant]
  5. RISEDRONATE SODIUM [Concomitant]
  6. DIAZEPAM [Concomitant]
  7. SPIRIVA [Concomitant]
  8. ALL OTHER THERAPEUTIC PRODUCTS [Concomitant]

REACTIONS (2)
  - Vision blurred [Unknown]
  - Visual impairment [Unknown]
